FAERS Safety Report 6824573-4 (Version None)
Quarter: 2010Q3

REPORT INFORMATION
  Report Type: 
  Country: None (occurrence: None)
  Receive Date: 20100708
  Receipt Date: 20061104
  Transmission Date: 20110219
  Serious: No
  Sender: FDA-Public Use
  Company Number: US-PFIZER INC-2006138150

PATIENT
  Sex: Female
  Weight: 64.86 kg

DRUGS (12)
  1. CHANTIX [Suspect]
     Indication: SMOKING CESSATION THERAPY
     Dates: start: 20061027
  2. METOPROLOL [Concomitant]
  3. LEXAPRO [Concomitant]
  4. PLAVIX [Concomitant]
  5. ACETYLSALICYLIC ACID [Concomitant]
  6. SYNTHROID [Concomitant]
  7. MUCINEX [Concomitant]
  8. RED YEAST RICE [Concomitant]
  9. VITAMINS [Concomitant]
  10. CALCIUM CARBONATE [Concomitant]
  11. DETROL LA [Concomitant]
  12. OXYGEN [Concomitant]

REACTIONS (2)
  - NAUSEA [None]
  - RETCHING [None]
